FAERS Safety Report 6686199-5 (Version None)
Quarter: 2010Q2

REPORT INFORMATION
  Report Type: 
  Country: None (occurrence: None)
  Receive Date: 20100419
  Receipt Date: 20100415
  Transmission Date: 20101027
  Serious: Yes (Death, Hospitalization, Other)
  Sender: FDA-Public Use
  Company Number: DE-ASTRAZENECA-2008PK02076

PATIENT
  Age: 71 Year
  Sex: Male
  Weight: 79 kg

DRUGS (8)
  1. NEXIUM [Suspect]
     Dosage: 40 MG; NUMBER OF SINGLE DOSE DIFFERENT PER DAY, BREAK: 25-26 DEC 2007
     Route: 048
     Dates: start: 20071222, end: 20080122
  2. NEXIUM [Suspect]
     Route: 042
     Dates: start: 20071225, end: 20071226
  3. AVALOX TAB [Suspect]
     Indication: PNEUMONIA
     Route: 048
     Dates: start: 20080110, end: 20080117
  4. AVALOX INF [Suspect]
     Indication: PNEUMONIA
     Dosage: 1X 1 INFUSION ON 08 JAN 2008
     Route: 042
     Dates: start: 20080108, end: 20080108
  5. DIFLUCAN [Suspect]
     Indication: OESOPHAGEAL CANDIDIASIS
     Dosage: SINGLE DOSE DIFFERENT
     Route: 048
     Dates: start: 20071228, end: 20080122
  6. NOVONORM [Suspect]
     Indication: DIABETIC NEUROPATHY
     Dosage: SINGLE DOSE DIFFERENT
     Route: 048
     Dates: start: 20080102, end: 20080122
  7. DECORTIN H [Concomitant]
     Dosage: SINGLE DOSE DIFFERENT; BREAKS: 25 DEC 2007, 01-02 JAN 2008
     Route: 048
     Dates: start: 20071222
  8. BISOHEXAL [Concomitant]
     Dosage: NUMBER OF SINGLE DOSE DIFFERENT, BREAK: 25-26 DEC 2007
     Route: 048
     Dates: start: 20071222

REACTIONS (1)
  - HEPATITIS ACUTE [None]
